FAERS Safety Report 5738065-7 (Version None)
Quarter: 2008Q2

REPORT INFORMATION
  Report Type: 
  Country: None (occurrence: None)
  Receive Date: 20080509
  Receipt Date: 20080415
  Transmission Date: 20081010
  Serious: Yes (Death)
  Sender: FDA-Public Use
  Company Number: RENA-1000084

PATIENT
  Age: 58 Year
  Sex: Female
  Weight: 87 kg

DRUGS (7)
  1. RENAGEL [Suspect]
     Indication: HYPERPHOSPHATAEMIA
     Dosage: QDX3, ORAL
     Route: 048
     Dates: start: 20070801, end: 20080129
  2. INEGY            (EZETIMIBE, SIMVASTATIN) [Concomitant]
  3. TORSEMIDE [Concomitant]
  4. ACTRAPHANE (INSULIN HUMAN, INSULIN HUMAN INJECTION, ISOPHANE) [Concomitant]
  5. OMEPRAZOLE [Concomitant]
  6. ACTRAPID (INSULIN HUMAN) [Concomitant]
  7. NOVALGIN (METAMIZOLE SODIUM MONOHYDRATE) [Concomitant]

REACTIONS (4)
  - CARDIAC ARREST [None]
  - DIALYSIS [None]
  - POST PROCEDURAL SEPSIS [None]
  - STEAL SYNDROME [None]
